FAERS Safety Report 13638934 (Version 1)
Quarter: 2017Q2

REPORT INFORMATION
  Report Type: Spontaneous
  Country: IT (occurrence: IT)
  Receive Date: 20170609
  Receipt Date: 20170609
  Transmission Date: 20170830
  Serious: Yes (Other)
  Sender: FDA-Public Use
  Company Number: IT-BAYER-2017-104543

PATIENT
  Age: 61 Year
  Sex: Male

DRUGS (1)
  1. CIPROFLOXACIN MONOHYDROCHLORIDE [Suspect]
     Active Substance: CIPROFLOXACIN
     Indication: ANTIBIOTIC PROPHYLAXIS
     Dosage: 500 MG, ONCE

REACTIONS (3)
  - Off label use [None]
  - Drug ineffective for unapproved indication [None]
  - Intervertebral discitis [Recovered/Resolved]
